FAERS Safety Report 24686862 (Version 2)
Quarter: 2024Q4

REPORT INFORMATION
  Report Type: Report from Study
  Country: US (occurrence: US)
  Receive Date: 20241202
  Receipt Date: 20241227
  Transmission Date: 20250114
  Serious: Yes (Other)
  Sender: MYLAN
  Company Number: US-MYLANLABS-2024M1105642

PATIENT
  Age: 22 Year
  Sex: Female

DRUGS (2)
  1. AMNESTEEM [Suspect]
     Active Substance: ISOTRETINOIN
     Indication: Product used for unknown indication
     Dosage: 80 MILLIGRAM, QD (DAILY)
     Route: 065
     Dates: start: 20240703, end: 20241018
  2. TRETINOIN [Concomitant]
     Active Substance: TRETINOIN
     Dosage: UNK
     Route: 065
     Dates: start: 20241029, end: 20241111

REACTIONS (4)
  - Abortion threatened [Unknown]
  - Pregnancy with contraceptive device [Unknown]
  - Maternal exposure during pregnancy [Unknown]
  - Dry skin [Unknown]

NARRATIVE: CASE EVENT DATE: 20241101
